FAERS Safety Report 6271903-0 (Version None)
Quarter: 2009Q3

REPORT INFORMATION
  Report Type: 
  Country: None (occurrence: None)
  Receive Date: 20090717
  Receipt Date: 20090707
  Transmission Date: 20100115
  Serious: Yes (Other)
  Sender: FDA-Public Use
  Company Number: US-ABBOTT-08P-163-0471636-00

PATIENT
  Sex: Female

DRUGS (5)
  1. HUMIRA [Suspect]
     Indication: PSORIASIS
     Route: 058
     Dates: start: 20080301, end: 20080701
  2. GLIPIZIDE [Concomitant]
     Indication: DIABETES MELLITUS
     Route: 048
  3. TOPROL-XL [Concomitant]
     Indication: BLOOD PRESSURE
     Route: 048
  4. COLCHICINE [Concomitant]
     Indication: GOUT
     Route: 048
  5. PROTONIX [Concomitant]
     Indication: DRUG USE FOR UNKNOWN INDICATION
     Route: 048

REACTIONS (5)
  - CHILLS [None]
  - NIGHT SWEATS [None]
  - PULMONARY MASS [None]
  - PYREXIA [None]
  - TUBERCULOSIS [None]
